FAERS Safety Report 5812496-9 (Version None)
Quarter: 2008Q3

REPORT INFORMATION
  Report Type: 
  Country: None (occurrence: None)
  Receive Date: 20080711
  Receipt Date: 20080625
  Transmission Date: 20090109
  Serious: Yes (Hospitalization)
  Sender: FDA-Public Use
  Company Number: 002#8#2008-00524

PATIENT
  Age: 89 Year
  Sex: Female

DRUGS (12)
  1. OMEPRAZOLE [Suspect]
     Indication: DRUG USE FOR UNKNOWN INDICATION
     Dosage: ORAL
     Route: 048
  2. TRANDOLAPRIL [Concomitant]
  3. INSULIN [Concomitant]
  4. CARBIMAZOLE [Concomitant]
  5. ACENOCOUMAROL [Concomitant]
  6. BROMAZEPAM [Concomitant]
  7. PANTOPRAZOLE SODIUM [Concomitant]
  8. ACETAMINOPHEN [Concomitant]
  9. PIPERAZILINE/TAZOBACTAM [Concomitant]
  10. METRONIDAZOLE HCL [Concomitant]
  11. CORTICOSTEROIDS [Concomitant]
  12. ENOXAPARIN SODIUM [Concomitant]

REACTIONS (2)
  - ACUTE GENERALISED EXANTHEMATOUS PUSTULOSIS [None]
  - COLITIS ISCHAEMIC [None]
